FAERS Safety Report 5534997-3 (Version None)
Quarter: 2007Q4

REPORT INFORMATION
  Report Type: 
  Country: None (occurrence: None)
  Receive Date: 20071203
  Receipt Date: 20071120
  Transmission Date: 20080405
  Serious: Yes (Hospitalization)
  Sender: FDA-Public Use
  Company Number: 07US000960

PATIENT
  Sex: Male

DRUGS (1)
  1. LITHIUM CARBONATE [Suspect]
     Indication: BIPOLAR DISORDER
     Dosage: 600 MG BID ORAL
     Route: 048
     Dates: start: 19790101

REACTIONS (6)
  - ALCOHOL PROBLEM [None]
  - DEPRESSION [None]
  - EYE PAIN [None]
  - FATIGUE [None]
  - HEADACHE [None]
  - HYPOTHYROIDISM [None]
